FAERS Safety Report 25998275 (Version 1)
Quarter: 2025Q4

REPORT INFORMATION
  Report Type: Spontaneous
  Country: EU (occurrence: EU)
  Receive Date: 20251105
  Receipt Date: 20251105
  Transmission Date: 20260117
  Serious: Yes (Hospitalization)
  Sender: LEO PHARM
  Company Number: None

PATIENT
  Age: 24 Year
  Sex: Male
  Weight: 83 kg

DRUGS (6)
  1. ADBRY [Suspect]
     Active Substance: TRALOKINUMAB-LDRM
     Indication: Dermatitis atopic
     Dosage: 2 INJECTIONS OR 300MG EVERY TWO WEEKS
     Route: 058
     Dates: start: 20230926, end: 20240319
  2. ADBRY [Suspect]
     Active Substance: TRALOKINUMAB-LDRM
     Indication: Dermatitis atopic
     Dosage: LOADING DOSE 4 INJECTIONS OF 150 MG
     Route: 058
     Dates: start: 20230912, end: 20230912
  3. DUPIXENT [Suspect]
     Active Substance: DUPILUMAB
     Indication: Dermatitis atopic
     Dosage: J0
     Route: 058
     Dates: start: 202211, end: 202211
  4. DUPIXENT [Suspect]
     Active Substance: DUPILUMAB
     Indication: Dermatitis atopic
     Route: 058
     Dates: start: 202211, end: 202306
  5. PROTOPIC [Concomitant]
     Active Substance: TACROLIMUS
     Indication: Dermatitis atopic
     Dosage: 1 APPLICATION MORNING AND EVENING ON THE EYELIDS UNTIL IMPROVED IF NECESSARY
     Route: 003
     Dates: start: 202211
  6. METHYLPHENIDATE HYDROCHLORIDE [Concomitant]
     Active Substance: METHYLPHENIDATE HYDROCHLORIDE
     Indication: Attention deficit hyperactivity disorder
     Dosage: NOT REPORTED
     Route: 048
     Dates: start: 202505

REACTIONS (2)
  - Eosinophilia [Not Recovered/Not Resolved]
  - Abdominal lymphadenopathy [Recovering/Resolving]

NARRATIVE: CASE EVENT DATE: 20240416
